FAERS Safety Report 4279546-5 (Version None)
Quarter: 2004Q1

REPORT INFORMATION
  Report Type: 
  Country: None (occurrence: None)
  Receive Date: 20040123
  Receipt Date: 20040113
  Transmission Date: 20041129
  Serious: Yes (Other)
  Sender: FDA-Public Use
  Company Number: 2004-01-0502

PATIENT
  Age: 32 Year
  Sex: Male

DRUGS (2)
  1. INTERFERON ALFA-2B INJECTABLES [Suspect]
     Indication: MALIGNANT MELANOMA
     Dosage: SUBCUTANEOUS
     Route: 058
  2. RADIATION THERAPY [Suspect]
     Indication: MALIGNANT MELANOMA
     Dosage: 5 K CGY TOTAL X-RAY THERA

REACTIONS (3)
  - NECROSIS [None]
  - RADIATION INJURY [None]
  - SKIN ULCER [None]
